FAERS Safety Report 18636813 (Version 1)
Quarter: 2020Q4

REPORT INFORMATION
  Report Type: Spontaneous
  Country: FR (occurrence: FR)
  Receive Date: 20201219
  Receipt Date: 20201219
  Transmission Date: 20210114
  Serious: Yes (Hospitalization, Other)
  Sender: FDA-Public Use
  Company Number: FR-AUROBINDO-AUR-APL-2020-061073

PATIENT
  Age: 37 Year
  Sex: Female
  Weight: 76 kg

DRUGS (2)
  1. SERTRALINE ARROW [Suspect]
     Active Substance: SERTRALINE HYDROCHLORIDE
     Indication: MENTAL DISORDER
     Dosage: 50 MILLIGRAM, ONCE A DAY
     Route: 048
     Dates: start: 20201009
  2. CONTRAMAL [Interacting]
     Active Substance: TRAMADOL HYDROCHLORIDE
     Indication: PAIN
     Dosage: 90 DOSAGE FORM, ONCE A DAY (30 DROPS)
     Route: 048
     Dates: start: 20201103, end: 20201106

REACTIONS (6)
  - Serotonin syndrome [Recovered/Resolved]
  - Inflammation [Recovering/Resolving]
  - Pyrexia [Recovered/Resolved]
  - Gastrointestinal disorder [Recovering/Resolving]
  - Rhabdomyolysis [Recovered/Resolved with Sequelae]
  - Coma [Recovered/Resolved]

NARRATIVE: CASE EVENT DATE: 20201103
